FAERS Safety Report 4628602-8 (Version None)
Quarter: 2005Q2

REPORT INFORMATION
  Report Type: 
  Country: None (occurrence: None)
  Receive Date: 20050404
  Receipt Date: 20050317
  Transmission Date: 20051028
  Serious: Yes (Hospitalization)
  Sender: FDA-Public Use
  Company Number: 10523

PATIENT
  Age: 53 Year
  Sex: Male

DRUGS (11)
  1. METHOTREXATE [Suspect]
     Indication: B-CELL LYMPHOMA
     Dosage: 400 MG/M2 OTH
  2. DOXORUBICIN HCL [Suspect]
     Indication: B-CELL LYMPHOMA
     Dosage: 50 MG/M2 FORTNIGHTLY IV
     Route: 042
  3. VINCRISTINE [Suspect]
     Indication: B-CELL LYMPHOMA
     Dosage: 1.4 MG/M2 FREQ UNK/NI IV
     Route: 042
  4. BLEOMYCIN [Suspect]
     Indication: B-CELL LYMPHOMA
     Dosage: 10 MG/M2 OTH
  5. CYCLOPHOSPHAMIDE [Suspect]
     Indication: B-CELL LYMPHOMA
     Dosage: 350 MG/M2 FORTNIGHTLY IV
     Route: 042
  6. PREDNISONE TAB [Suspect]
     Indication: B-CELL LYMPHOMA
     Dosage: 375 MG/M2 WEEKLY/NI
  7. ANTI-EMETICS [Concomitant]
  8. STEROIDS [Concomitant]
  9. FOLINIC ACID [Concomitant]
  10. COTRIM [Concomitant]
  11. LAMIVUDINE [Concomitant]

REACTIONS (9)
  - ARRHYTHMIA [None]
  - ATRIAL FIBRILLATION [None]
  - BONE MARROW TOXICITY [None]
  - DEEP VEIN THROMBOSIS [None]
  - DYSTROPHIA MYOTONICA [None]
  - HEART RATE DECREASED [None]
  - MUCOSAL INFLAMMATION [None]
  - NEUTROPENIA [None]
  - THERAPY NON-RESPONDER [None]
